FAERS Safety Report 5893089-4 (Version None)
Quarter: 2008Q3

REPORT INFORMATION
  Report Type: 
  Country: None (occurrence: None)
  Receive Date: 20080923
  Receipt Date: 20080911
  Transmission Date: 20090109
  Serious: Yes (Hospitalization)
  Sender: FDA-Public Use
  Company Number: BR-ROCHE-586551

PATIENT
  Age: 73 Year
  Sex: Female
  Weight: 82 kg

DRUGS (3)
  1. ROCALTROL [Suspect]
     Indication: HORMONE REPLACEMENT THERAPY
     Route: 048
     Dates: start: 20000101, end: 20080831
  2. EUTHYROX [Concomitant]
     Indication: THYROID DISORDER
     Dosage: DOSAGE REGIMEN REPORTED AS 1X/ DAY.
     Route: 048
  3. DIURESIN SR [Concomitant]
     Dates: start: 20030101

REACTIONS (4)
  - CARDIOMYOPATHY [None]
  - CEREBROVASCULAR ACCIDENT [None]
  - MUSCLE STRAIN [None]
  - SKIN DISORDER [None]
